FAERS Safety Report 16230661 (Version 4)
Quarter: 2019Q3

REPORT INFORMATION
  Report Type: Report from Study
  Country: US (occurrence: US)
  Receive Date: 20190423
  Receipt Date: 20190821
  Transmission Date: 20191004
  Serious: Yes (Hospitalization, Other)
  Sender: FDA-Public Use
  Company Number: US-ACTELION-A-NJ2017-162311

PATIENT
  Sex: Female
  Weight: 50.34 kg

DRUGS (7)
  1. VELETRI [Suspect]
     Active Substance: EPOPROSTENOL
     Dosage: 20 NG/KG, PER MIN
     Route: 042
  2. VELETRI [Suspect]
     Active Substance: EPOPROSTENOL
     Dosage: 76 NG/KG, PER MIN
     Route: 042
  3. VELETRI [Suspect]
     Active Substance: EPOPROSTENOL
     Dosage: 12 NG/KG, PER MIN
     Route: 042
  4. VELETRI [Suspect]
     Active Substance: EPOPROSTENOL
     Indication: PULMONARY ARTERIAL HYPERTENSION
     Dosage: 82 NG/KG, PER MIN
     Route: 042
  5. VELETRI [Suspect]
     Active Substance: EPOPROSTENOL
     Dosage: 24 NG/KG, PER MIN
     Route: 042
  6. ADCIRCA [Concomitant]
     Active Substance: TADALAFIL
  7. NIFEDIPINE. [Concomitant]
     Active Substance: NIFEDIPINE

REACTIONS (17)
  - Lung neoplasm malignant [Not Recovered/Not Resolved]
  - Vomiting [Unknown]
  - Dyspnoea exertional [Unknown]
  - Nausea [Unknown]
  - Device malfunction [Unknown]
  - Pneumonia [Unknown]
  - Pain in jaw [Unknown]
  - Catheter site erythema [Unknown]
  - Diarrhoea [Not Recovered/Not Resolved]
  - Dry skin [Unknown]
  - Neoplasm malignant [Unknown]
  - Headache [Unknown]
  - Cough [Unknown]
  - Decreased appetite [Unknown]
  - Lip dry [Unknown]
  - Dyspnoea [Unknown]
  - Pruritus [Unknown]
